FAERS Safety Report 5509922-1 (Version None)
Quarter: 2007Q4

REPORT INFORMATION
  Report Type: 
  Country: None (occurrence: None)
  Receive Date: 20071107
  Receipt Date: 20071107
  Transmission Date: 20080405
  Serious: Yes (Death)
  Sender: FDA-Public Use
  Company Number: None

PATIENT
  Age: 63 Year
  Sex: Male
  Weight: 27.8509 kg

DRUGS (5)
  1. BORTEZOMIB [Suspect]
     Indication: RENAL CELL CARCINOMA STAGE UNSPECIFIED
     Dosage: 1.6 MG/M2 DAYS 1+8 IV
     Route: 042
     Dates: start: 20070604, end: 20071009
  2. BEVACIZUMAB [Suspect]
     Indication: RENAL CELL CARCINOMA STAGE UNSPECIFIED
     Dosage: 15 MG/KG DAY 1 IV
     Route: 042
     Dates: start: 20070604, end: 20071001
  3. COLACE [Concomitant]
  4. NORVASC [Concomitant]
  5. GLYBURIDE [Concomitant]

REACTIONS (1)
  - NASOPHARYNGITIS [None]
